FAERS Safety Report 5693905-5 (Version None)
Quarter: 2008Q2

REPORT INFORMATION
  Report Type: 
  Country: None (occurrence: None)
  Receive Date: 20080403
  Receipt Date: 20080301
  Transmission Date: 20081010
  Serious: Yes (Other)
  Sender: FDA-Public Use
  Company Number: US-PFIZER INC-2008021167

PATIENT
  Sex: Male
  Weight: 77.272 kg

DRUGS (4)
  1. CHANTIX [Suspect]
     Indication: SMOKING CESSATION THERAPY
     Route: 048
     Dates: start: 20080101, end: 20080216
  2. ANTIHYPERTENSIVES [Concomitant]
  3. XANAX [Concomitant]
  4. OXYCONTIN [Concomitant]

REACTIONS (4)
  - CONVULSION [None]
  - FLATULENCE [None]
  - INSOMNIA [None]
  - SUICIDAL IDEATION [None]
